FAERS Safety Report 8614632-8 (Version None)
Quarter: 2012Q3

REPORT INFORMATION
  Report Type: 
  Country: None (occurrence: None)
  Receive Date: 20120823
  Receipt Date: 20120822
  Transmission Date: 20120928
  Serious: Yes (Other)
  Sender: FDA-Public Use
  Company Number: PHFR2012GB003419

PATIENT
  Sex: Female
  Weight: 49 kg

DRUGS (7)
  1. ALENDRONATE SODIUM [Concomitant]
     Dosage: 70 MG, ONCE A WEEK
  2. ATENOLOL [Concomitant]
     Dosage: 100 MG, QD
  3. CALCICHEW D3 [Concomitant]
     Dosage: 2 DF, QD
  4. LEVETIRACETAM [Concomitant]
     Dosage: 250 MG, BID
  5. TEGRETOL-XR [Suspect]
     Dosage: 600 MG, UNK
     Route: 048
  6. PERINDOPRIL ERBUMINE [Concomitant]
     Dosage: 2 DF, AT NIGHT
  7. TEGRETOL-XR [Suspect]
     Dosage: 400 MG, BID
     Route: 048

REACTIONS (5)
  - DYSGEUSIA [None]
  - DRUG LEVEL INCREASED [None]
  - EPILEPSY [None]
  - MALAISE [None]
  - NAUSEA [None]
